FAERS Safety Report 10202265 (Version 2)
Quarter: 2014Q2

REPORT INFORMATION
  Report Type: Spontaneous
  Country: US (occurrence: US)
  Receive Date: 20140528
  Receipt Date: 20140528
  Transmission Date: 20141212
  Serious: No
  Sender: FDA-Public Use
  Company Number: US-BRISTOL-MYERS SQUIBB COMPANY-20210175

PATIENT
  Age: 55 Year
  Sex: Male
  Weight: 91.61 kg

DRUGS (1)
  1. METFORMIN HCL [Suspect]

REACTIONS (1)
  - Hypersensitivity [Unknown]
